FAERS Safety Report 7457605-3 (Version None)
Quarter: 2011Q2

REPORT INFORMATION
  Report Type: 
  Country: None (occurrence: None)
  Receive Date: 20110504
  Receipt Date: 20110425
  Transmission Date: 20111010
  Serious: Yes (Hospitalization)
  Sender: FDA-Public Use
  Company Number: US-ELI_LILLY_AND_COMPANY-US201104007420

PATIENT
  Sex: Male
  Weight: 66.984 kg

DRUGS (11)
  1. BEVACIZUMAB [Suspect]
     Indication: NON-SMALL CELL LUNG CANCER STAGE IV
     Dosage: 15 MG/KG, DAY 1 EVERY 21 DAYS
     Route: 042
  2. DIGOXIN [Concomitant]
     Indication: ARRHYTHMIA
     Dosage: UNK
     Dates: start: 20090902
  3. PEMETREXED [Suspect]
     Indication: NON-SMALL CELL LUNG CANCER STAGE IV
     Dosage: 500 MG/M2, DAY 1 EVERY 21 DAYS
     Route: 042
  4. BEVACIZUMAB [Suspect]
     Dosage: 15 MG/KG, OTHER
     Route: 042
     Dates: start: 20100505
  5. PEPCID [Concomitant]
     Indication: PROPHYLAXIS
     Dosage: UNK
     Dates: start: 20100126
  6. NORVASC [Concomitant]
     Indication: HYPERTENSION
     Dosage: UNK
     Dates: start: 20100414
  7. PEMETREXED [Suspect]
     Dosage: 375 MG/M2, DAY 1 EVERY 21 DAYS
     Route: 042
     Dates: start: 20100505
  8. COREG [Concomitant]
     Indication: HYPERTENSION
     Dosage: UNK
     Dates: start: 20070902
  9. COLCHICINE [Concomitant]
     Indication: GOUT
     Dosage: UNK
     Dates: start: 20090721
  10. FOLIC ACID [Concomitant]
     Indication: PREMEDICATION
     Dosage: UNK
     Dates: start: 20100112
  11. CARBOPLATIN [Suspect]
     Indication: NON-SMALL CELL LUNG CANCER STAGE IV
     Dosage: 6 DF, DAY 1 EVERY 21 DAYS
     Route: 042

REACTIONS (2)
  - HYPOTHERMIA [None]
  - DIARRHOEA [None]
